FAERS Safety Report 14161261 (Version 1)
Quarter: 2017Q4

REPORT INFORMATION
  Report Type: Spontaneous
  Country: BR (occurrence: BR)
  Receive Date: 20171106
  Receipt Date: 20171106
  Transmission Date: 20180321
  Serious: Yes (Other)
  Sender: FDA-Public Use
  Company Number: BR-PFIZER INC-2017433779

PATIENT
  Age: 52 Year
  Sex: Female

DRUGS (2)
  1. CITALOR [Suspect]
     Active Substance: ATORVASTATIN
     Indication: BLOOD CHOLESTEROL ABNORMAL
     Dosage: 10MG, DAILY
     Dates: start: 2005, end: 2008
  2. CITALOR [Suspect]
     Active Substance: ATORVASTATIN
     Dosage: 10MG, ALTERNATE DAY
     Dates: start: 2008

REACTIONS (3)
  - Osteoarthritis [Not Recovered/Not Resolved]
  - Product use issue [Not Recovered/Not Resolved]
  - Muscular weakness [Recovered/Resolved]

NARRATIVE: CASE EVENT DATE: 2008
